FAERS Safety Report 4552924-2 (Version None)
Quarter: 2005Q1

REPORT INFORMATION
  Report Type: 
  Country: None (occurrence: None)
  Receive Date: 20050114
  Receipt Date: 20050105
  Transmission Date: 20050727
  Serious: Yes (Hospitalization)
  Sender: FDA-Public Use
  Company Number: 2137121

PATIENT
  Age: 50 Year
  Sex: Male

DRUGS (1)
  1. NICORETTE [Suspect]
     Route: 002

REACTIONS (1)
  - ALCOHOLISM [None]
